FAERS Safety Report 24632977 (Version 1)
Quarter: 2024Q4

REPORT INFORMATION
  Report Type: Spontaneous
  Country: US (occurrence: US)
  Receive Date: 20241118
  Receipt Date: 20241118
  Transmission Date: 20250114
  Serious: No
  Sender: PERRIGO
  Company Number: US-PERRIGO-24US009008

PATIENT
  Sex: Male

DRUGS (1)
  1. OPILL [Suspect]
     Active Substance: NORGESTREL
     Indication: Accidental exposure to product
     Dosage: 0.075 MG, SINGLE
     Route: 048
     Dates: start: 20240921, end: 20240921

REACTIONS (2)
  - Accidental exposure to product [Unknown]
  - Product use issue [Unknown]

NARRATIVE: CASE EVENT DATE: 20240921
